FAERS Safety Report 23694642 (Version 2)
Quarter: 2024Q2

REPORT INFORMATION
  Report Type: Spontaneous
  Country: DE (occurrence: DE)
  Receive Date: 20240402
  Receipt Date: 20240408
  Transmission Date: 20240716
  Serious: Yes (Life-Threatening)
  Sender: FDA-Public Use
  Company Number: DE-BAYER-2024A036416

PATIENT
  Age: 73 Year
  Sex: Male
  Weight: 115 kg

DRUGS (4)
  1. LUPRON [Suspect]
     Active Substance: LEUPROLIDE ACETATE
     Indication: Prostate cancer
     Dosage: 5 MILLIGRAM, Q3MONTHS
     Route: 058
     Dates: start: 20230831, end: 20231130
  2. NUBEQA [Suspect]
     Active Substance: DAROLUTAMIDE
     Indication: Prostate cancer
     Dosage: 600 MILLIGRAM, QD
     Route: 048
     Dates: start: 20231114, end: 20231130
  3. DOCETAXEL [Suspect]
     Active Substance: DOCETAXEL\DOCETAXEL ANHYDROUS
     Indication: Prostate cancer
     Dosage: 120.5 MILLIGRAM, Q2WEEKS
     Route: 042
     Dates: start: 20231211, end: 20231211
  4. DOCETAXEL [Suspect]
     Active Substance: DOCETAXEL\DOCETAXEL ANHYDROUS
     Indication: Prostate cancer
     Dosage: 120.5 MILLIGRAM, Q2WEEKS
     Route: 042
     Dates: start: 20231120, end: 20231130

REACTIONS (2)
  - Neutrophil count decreased [Recovered/Resolved]
  - Off label use [Unknown]

NARRATIVE: CASE EVENT DATE: 20231114
